FAERS Safety Report 15606964 (Version 2)
Quarter: 2018Q4

REPORT INFORMATION
  Report Type: Report from Study
  Country: JP (occurrence: JP)
  Receive Date: 20181112
  Receipt Date: 20181229
  Transmission Date: 20190205
  Serious: Yes (Hospitalization, Other)
  Sender: FDA-Public Use
  Company Number: JP-GLAXOSMITHKLINE-JP2018JPN202200

PATIENT
  Age: 6 Decade
  Sex: Female

DRUGS (4)
  1. MEPOLIZUMAB [Suspect]
     Active Substance: MEPOLIZUMAB
     Indication: EOSINOPHILIC GRANULOMATOSIS WITH POLYANGIITIS
     Dosage: 300 MG, EVERY FOUR WEEKS
     Route: 058
     Dates: start: 20181009, end: 2018
  2. PREDONINE [Suspect]
     Active Substance: PREDNISOLONE
     Indication: PACHYMENINGITIS
     Dosage: UNK
     Route: 065
  3. PREDONINE [Suspect]
     Active Substance: PREDNISOLONE
     Dosage: 60 MG, 1D
     Route: 065
     Dates: start: 20181029
  4. PREDONINE [Suspect]
     Active Substance: PREDNISOLONE
     Dosage: 50 MG, 1D
     Route: 065
     Dates: start: 2018

REACTIONS (1)
  - Pachymeningitis [Recovering/Resolving]

NARRATIVE: CASE EVENT DATE: 20181029
